FAERS Safety Report 6150922-9 (Version None)
Quarter: 2009Q2

REPORT INFORMATION
  Report Type: 
  Country: None (occurrence: None)
  Receive Date: 20090408
  Receipt Date: 20090325
  Transmission Date: 20091009
  Serious: Yes (Death, Hospitalization)
  Sender: FDA-Public Use
  Company Number: RENA-1000410

PATIENT
  Age: 68 Year
  Sex: Female

DRUGS (8)
  1. RENAGEL [Suspect]
     Indication: HYPERPHOSPHATAEMIA
     Dosage: 800 MG, QD, ORAL
     Route: 048
     Dates: start: 20090111, end: 20090121
  2. ROVAMYCIN (SPIRAMYCIN) TABLET [Suspect]
     Indication: BRONCHITIS
     Dosage: 3 10E6, BID, ORAL
     Route: 048
     Dates: start: 20090106, end: 20090115
  3. CEFTRIAXONE [Suspect]
     Indication: BRONCHITIS
     Dosage: 1 G, QD, INTRAVENOUS
     Route: 042
     Dates: start: 20090106, end: 20090115
  4. PLAQUENIL [Suspect]
     Indication: DRUG USE FOR UNKNOWN INDICATION
     Dosage: 200 MG, BID, ORAL
     Route: 048
     Dates: start: 20081201, end: 20090119
  5. BENEMID [Suspect]
     Indication: DRUG USE FOR UNKNOWN INDICATION
     Dosage: 500 MG, BID, ORAL
     Route: 048
     Dates: start: 20081206, end: 20090119
  6. COLCHICINE (COLCHICINE) TABLET [Suspect]
     Indication: DRUG USE FOR UNKNOWN INDICATION
     Dosage: 0.5 MG, QD, ORAL
     Route: 048
     Dates: start: 20070601, end: 20090122
  7. MEDIATOR (BENFLUOREX HYDROCHLORIDE) TABLET [Suspect]
     Indication: DRUG USE FOR UNKNOWN INDICATION
     Dosage: 150 MG, TID, ORAL
     Route: 048
     Dates: end: 20090119
  8. ATORVASTATIN CALCIUM [Suspect]
     Dosage: 40 MG, QD, ORAL
     Route: 048
     Dates: end: 20090119

REACTIONS (19)
  - ANTINUCLEAR ANTIBODY [None]
  - BLOOD CREATININE INCREASED [None]
  - BLOOD CULTURE POSITIVE [None]
  - BRONCHITIS [None]
  - DRUG ERUPTION [None]
  - ERYTHEMA MULTIFORME [None]
  - GENITAL CANDIDIASIS [None]
  - INFLAMMATION [None]
  - LABORATORY TEST ABNORMAL [None]
  - ORAL CANDIDIASIS [None]
  - PRURITUS [None]
  - PURPURA [None]
  - RASH ERYTHEMATOUS [None]
  - RASH MACULO-PAPULAR [None]
  - RASH MORBILLIFORM [None]
  - RASH PUSTULAR [None]
  - SKIN EXFOLIATION [None]
  - STREPTOCOCCAL INFECTION [None]
  - VEILLONELLA INFECTION [None]
